FAERS Safety Report 10626261 (Version 1)
Quarter: 2014Q4

REPORT INFORMATION
  Report Type: Spontaneous
  Country: US (occurrence: US)
  Receive Date: 20141204
  Receipt Date: 20141204
  Transmission Date: 20150529
  Serious: Yes (Other)
  Sender: FDA-Public Use
  Company Number: US-WATSON-2014-25803

PATIENT
  Age: 27 Year
  Sex: Male

DRUGS (1)
  1. NANDROLONE DECANOATE (WATSON LABORATORIES) [Suspect]
     Active Substance: NANDROLONE DECANOATE
     Indication: PRODUCT USED FOR UNKNOWN INDICATION
     Dosage: 50 MG, DAILY
     Route: 051

REACTIONS (1)
  - Osteonecrosis [Recovered/Resolved]
